FAERS Safety Report 10262916 (Version 2)
Quarter: 2014Q2

REPORT INFORMATION
  Report Type: Report from Study
  Country: US (occurrence: US)
  Receive Date: 20140626
  Receipt Date: 20140626
  Transmission Date: 20141212
  Serious: Yes (Other)
  Sender: FDA-Public Use
  Company Number: US-MYLANLABS-2013S1022686

PATIENT
  Age: 55 Year
  Sex: Female
  Weight: 83 kg

DRUGS (12)
  1. CLOZAPINE TABLETS [Suspect]
     Indication: PSYCHOTIC DISORDER
     Route: 048
     Dates: start: 20130930, end: 20131003
  2. CLOZAPINE TABLETS [Suspect]
     Indication: SCHIZOPHRENIA
     Route: 048
     Dates: start: 20130930, end: 20131003
  3. MAALOX [Concomitant]
  4. KLONOPIN [Concomitant]
  5. FLEXERIL [Concomitant]
  6. VITAMIN D [Concomitant]
  7. INSULIN [Concomitant]
  8. ATIVAN [Concomitant]
  9. METFORMIN [Concomitant]
  10. ZYPREXA [Concomitant]
  11. AMBIEN [Concomitant]
  12. ULTRAM /00599202/ [Concomitant]

REACTIONS (2)
  - Granulocytopenia [Not Recovered/Not Resolved]
  - Somnolence [Not Recovered/Not Resolved]
